FAERS Safety Report 9096529 (Version 1)
Quarter: 2013Q1

REPORT INFORMATION
  Report Type: Spontaneous
  Country: BG (occurrence: BG)
  Receive Date: 20130211
  Receipt Date: 20130211
  Transmission Date: 20140127
  Serious: Yes (Other)
  Sender: FDA-Public Use
  Company Number: PHHY2013BG011682

PATIENT
  Age: 43 Year
  Sex: Male

DRUGS (6)
  1. CEFPODOXIME PROXETIL [Suspect]
     Indication: ASTHENIA
     Dosage: 200 MG, BID (IN THE MORNING AND THE SECOND DOSE IN THE EVENING)
     Route: 048
     Dates: start: 20130201, end: 20130201
  2. CEFPODOXIME PROXETIL [Suspect]
     Indication: PRODUCTIVE COUGH
  3. CEFPODOXIME PROXETIL [Suspect]
     Indication: PYREXIA
  4. CEFPODOXIME PROXETIL [Suspect]
     Indication: MYALGIA
  5. CEFPODOXIME PROXETIL [Suspect]
     Indication: ARTHRALGIA
  6. AMBROXOL [Concomitant]
     Dosage: 30 MG, TID
     Route: 048

REACTIONS (3)
  - Syncope [Recovered/Resolved]
  - Renal pain [Recovered/Resolved]
  - Diarrhoea [Recovered/Resolved]
